FAERS Safety Report 6761121-1 (Version None)
Quarter: 2010Q2

REPORT INFORMATION
  Report Type: 
  Country: None (occurrence: None)
  Receive Date: 20100604
  Receipt Date: 20100521
  Transmission Date: 20101027
  Serious: Yes (Hospitalization)
  Sender: FDA-Public Use
  Company Number: 2010SP001479

PATIENT
  Age: 81 Year
  Sex: Male
  Weight: 73.9 kg

DRUGS (6)
  1. OMNARIS [Suspect]
     Indication: RHINORRHOEA
     Dosage: NASAL; 200 UG;BID; NASAL
     Route: 045
     Dates: end: 20100101
  2. OMNARIS [Suspect]
     Indication: RHINORRHOEA
     Dosage: NASAL; 200 UG;BID; NASAL
     Route: 045
     Dates: start: 20100501, end: 20100519
  3. PLAVIX [Concomitant]
  4. SINGULAIR /01362601/ [Concomitant]
  5. ASPIRIN [Concomitant]
  6. DIURETICS [Concomitant]

REACTIONS (10)
  - ARRHYTHMIA [None]
  - DRUG INEFFECTIVE [None]
  - FALL [None]
  - FLUID RETENTION [None]
  - INFECTION [None]
  - INJURY [None]
  - LETHARGY [None]
  - MALAISE [None]
  - RHINORRHOEA [None]
  - SOMNOLENCE [None]
